FAERS Safety Report 4767655-3 (Version None)
Quarter: 2005Q3

REPORT INFORMATION
  Report Type: 
  Country: None (occurrence: None)
  Receive Date: 20050912
  Receipt Date: 20050831
  Transmission Date: 20060218
  Serious: Yes (Hospitalization)
  Sender: FDA-Public Use
  Company Number: 2005101154

PATIENT
  Age: 39 Year
  Sex: Female
  Weight: 58 kg

DRUGS (5)
  1. SULFASALAZINE [Suspect]
     Indication: COLITIS ULCERATIVE
     Dosage: 3 GRAM (1 IN 1 D), ORAL
     Route: 048
     Dates: start: 20050627, end: 20050703
  2. ACETAMINOPHEN [Suspect]
     Indication: NASOPHARYNGITIS
     Dosage: ORAL
     Route: 048
     Dates: start: 20050703, end: 20050705
  3. PENTASA ^PHARMACIA^ (MESALAZINE) [Concomitant]
  4. BETAMETHASONE [Concomitant]
  5. RISUMIC (AMEZINIUM METILSULFATE) [Concomitant]

REACTIONS (6)
  - DRUG ERUPTION [None]
  - HEADACHE [None]
  - LIVER DISORDER [None]
  - NASOPHARYNGITIS [None]
  - PRURITUS [None]
  - PYREXIA [None]
